FAERS Safety Report 11544312 (Version 1)
Quarter: 2015Q3

REPORT INFORMATION
  Report Type: Spontaneous
  Country: US (occurrence: None)
  Receive Date: 20150923
  Receipt Date: 20150923
  Transmission Date: 20151125
  Serious: Yes (Disabling)
  Sender: FDA-Public Use
  Company Number: None

PATIENT
  Age: 51 Year
  Sex: Female
  Weight: 74.84 kg

DRUGS (6)
  1. LEVAQUIN [Suspect]
     Active Substance: LEVOFLOXACIN
     Indication: HOSPITALISATION
     Dates: start: 20150608, end: 20150608
  2. ATENOLOL. [Concomitant]
     Active Substance: ATENOLOL
  3. XANAX [Concomitant]
     Active Substance: ALPRAZOLAM
  4. CHAMOMILE TEA [Concomitant]
     Active Substance: MATRICARIA RECUTITA
  5. SIMVASTATIN. [Concomitant]
     Active Substance: SIMVASTATIN
  6. ELAVIL [Concomitant]
     Active Substance: AMITRIPTYLINE HYDROCHLORIDE

REACTIONS (21)
  - Cognitive disorder [None]
  - Contraindication to medical treatment [None]
  - Vision blurred [None]
  - Thinking abnormal [None]
  - Toxicity to various agents [None]
  - Coordination abnormal [None]
  - Stupor [None]
  - Feeling abnormal [None]
  - Balance disorder [None]
  - Throat tightness [None]
  - Muscular weakness [None]
  - Activities of daily living impaired [None]
  - Hypoaesthesia [None]
  - Myalgia [None]
  - Diplopia [None]
  - Paraesthesia [None]
  - Neurotoxicity [None]
  - Cough [None]
  - Gait disturbance [None]
  - Tendon disorder [None]
  - Neuralgia [None]

NARRATIVE: CASE EVENT DATE: 20150608
